FAERS Safety Report 6235854-X (Version None)
Quarter: 2009Q2

REPORT INFORMATION
  Report Type: 
  Country: None (occurrence: None)
  Receive Date: 20090617
  Receipt Date: 20090617
  Transmission Date: 20091009
  Serious: Yes (Other)
  Sender: FDA-Public Use
  Company Number: None

PATIENT
  Age: 52 Year
  Sex: Male
  Weight: 76.2043 kg

DRUGS (1)
  1. ZICAM MATRIXX CORP [Suspect]
     Indication: NASOPHARYNGITIS
     Dosage: DAILY AS NEEDED NASAL
     Route: 045
     Dates: start: 19990901, end: 20090616

REACTIONS (1)
  - ANOSMIA [None]
